FAERS Safety Report 11329721 (Version 1)
Quarter: 2015Q3

REPORT INFORMATION
  Report Type: Spontaneous
  Country: DE (occurrence: DE)
  Receive Date: 20150803
  Receipt Date: 20150803
  Transmission Date: 20151125
  Serious: Yes (Death, Life-Threatening, Other)
  Sender: FDA-Public Use
  Company Number: DE-ASTRAZENECA-2015SE73248

PATIENT
  Age: 80 Year
  Sex: Male

DRUGS (10)
  1. BELOK-ZOK [Suspect]
     Active Substance: METOPROLOL SUCCINATE
     Route: 048
     Dates: start: 20110323, end: 20110327
  2. EXELON [Concomitant]
     Active Substance: RIVASTIGMINE TARTRATE
     Dates: start: 20100501, end: 20110325
  3. HALDOL [Interacting]
     Active Substance: HALOPERIDOL
     Dosage: 5-10 MG IN 1 DAY
     Route: 048
     Dates: start: 20110323, end: 20110327
  4. DIPIPERON [Interacting]
     Active Substance: PIPAMPERONE
     Route: 048
     Dates: start: 20110327
  5. NORVASC [Interacting]
     Active Substance: AMLODIPINE BESYLATE
     Route: 048
     Dates: start: 20110327
  6. CLEXANE [Concomitant]
     Active Substance: ENOXAPARIN SODIUM
     Route: 048
  7. EUNERPAN [Interacting]
     Active Substance: MELPERONE HYDROCHLORIDE
     Route: 048
     Dates: start: 20110323, end: 20110325
  8. PANTOZOL [Concomitant]
     Active Substance: PANTOPRAZOLE SODIUM
     Route: 048
  9. DELIX [Interacting]
     Active Substance: RAMIPRIL
     Route: 048
     Dates: start: 20110323, end: 20110327
  10. COTRIM [Concomitant]
     Active Substance: SULFAMETHOXAZOLE\TRIMETHOPRIM
     Dosage: 160/180 DAILY
     Route: 048
     Dates: start: 20110324, end: 20110327

REACTIONS (2)
  - Drug interaction [Unknown]
  - Sudden death [Fatal]

NARRATIVE: CASE EVENT DATE: 20110328
